FAERS Safety Report 5578810-7 (Version None)
Quarter: 2008Q1

REPORT INFORMATION
  Report Type: 
  Country: None (occurrence: None)
  Receive Date: 20080102
  Receipt Date: 20071220
  Transmission Date: 20080703
  Serious: Yes (Hospitalization)
  Sender: FDA-Public Use
  Company Number: US-JNJFOC-20071205822

PATIENT
  Sex: Female
  Weight: 81.65 kg

DRUGS (6)
  1. DURAGESIC-100 [Suspect]
     Indication: FIBROMYALGIA
     Route: 062
  2. FENTANYL TRANSDERMAL SYSTEM [Suspect]
     Indication: FIBROMYALGIA
     Dosage: 2 X 100 MCG PATCHES
     Route: 062
  3. SEROQUEL [Concomitant]
     Indication: SLEEP DISORDER
     Route: 048
  4. LAMICTAL [Concomitant]
     Indication: ANXIETY
     Route: 048
  5. CLONAZEPAM [Concomitant]
     Indication: ANXIETY
     Route: 048
  6. ACETAMINOPHEN AND OXYCODONE HCL [Concomitant]
     Indication: BREAKTHROUGH PAIN
     Route: 048

REACTIONS (13)
  - APPLICATION SITE DRYNESS [None]
  - ASTHMA [None]
  - DIABETES MELLITUS [None]
  - DIZZINESS [None]
  - DRUG ADMINISTERED AT INAPPROPRIATE SITE [None]
  - DRY EYE [None]
  - GASTROOESOPHAGEAL REFLUX DISEASE [None]
  - MUSCLE SPASMS [None]
  - NAUSEA [None]
  - NEUROPATHY PERIPHERAL [None]
  - SKIN LACERATION [None]
  - SPINAL DISORDER [None]
  - WRONG TECHNIQUE IN DRUG USAGE PROCESS [None]
